FAERS Safety Report 22028795 (Version 1)
Quarter: 2023Q1

REPORT INFORMATION
  Report Type: Spontaneous
  Country: GB (occurrence: GB)
  Receive Date: 20230223
  Receipt Date: 20230223
  Transmission Date: 20230418
  Serious: Yes (Disabling, Other)
  Sender: FDA-Public Use
  Company Number: None

PATIENT
  Sex: Female

DRUGS (1)
  1. CIPROFLOXACIN [Suspect]
     Active Substance: CIPROFLOXACIN
     Indication: Urinary tract infection
     Dates: start: 2014

REACTIONS (21)
  - Bradycardia [None]
  - Dizziness [None]
  - Eye movement disorder [None]
  - Muscular weakness [None]
  - Muscle atrophy [None]
  - Dupuytren^s contracture [None]
  - Balance disorder [None]
  - Myopathy [None]
  - Vitreous floaters [None]
  - Cataract [None]
  - Deafness unilateral [None]
  - Tinnitus [None]
  - Osteoporosis [None]
  - Constipation [None]
  - Reflux gastritis [None]
  - Extrasystoles [None]
  - Hypotension [Not Recovered/Not Resolved]
  - Crying [None]
  - Mobility decreased [None]
  - Fine motor skill dysfunction [None]
  - Gastrointestinal bacterial overgrowth [None]
